FAERS Safety Report 25443552 (Version 1)
Quarter: 2025Q2

REPORT INFORMATION
  Report Type: Spontaneous
  Country: DE (occurrence: DE)
  Receive Date: 20250617
  Receipt Date: 20250617
  Transmission Date: 20250717
  Serious: Yes (Other)
  Sender: SAMSUNG BIOEPIS
  Company Number: DE-SAMSUNG BIOEPIS-SB-2025-20715

PATIENT
  Age: 22 Year
  Sex: Male

DRUGS (3)
  1. ADALIMUMAB [Suspect]
     Active Substance: ADALIMUMAB
     Indication: Chronic recurrent multifocal osteomyelitis
     Route: 058
     Dates: end: 202205
  2. NAPROXEN [Concomitant]
     Active Substance: NAPROXEN
     Indication: Back pain
  3. ISOTRETINOIN [Concomitant]
     Active Substance: ISOTRETINOIN
     Indication: Acne conglobata
     Dosage: ACCORDING TO 0.5 MG/KG BODY WEIGHT
     Route: 048

REACTIONS (4)
  - Psoriasis [Recovered/Resolved]
  - Impaired quality of life [Unknown]
  - Arthralgia [Unknown]
  - Off label use [Unknown]

NARRATIVE: CASE EVENT DATE: 20210901
